FAERS Safety Report 20638566 (Version 2)
Quarter: 2022Q2

REPORT INFORMATION
  Report Type: Spontaneous
  Country: DE (occurrence: DE)
  Receive Date: 20220325
  Receipt Date: 20220415
  Transmission Date: 20220721
  Serious: Yes (Other)
  Sender: FDA-Public Use
  Company Number: DE-BRISTOL-MYERS SQUIBB COMPANY-2022-010188

PATIENT
  Sex: Female

DRUGS (2)
  1. ELIQUIS [Suspect]
     Active Substance: APIXABAN
     Indication: Cerebrovascular accident prophylaxis
     Dosage: DOSE : UNAVAILABLE;     FREQ : UNAVAILABLE. DOSAGE FORM 245
     Route: 065
  2. ELIQUIS [Suspect]
     Active Substance: APIXABAN
     Indication: Atrial fibrillation
     Dosage: DOSE : UNAVAILABLE;     FREQ : UNAVAILABLE. DOSAGE FORM 245
     Route: 065

REACTIONS (4)
  - Haemorrhage [Unknown]
  - Cardiac disorder [Unknown]
  - Tooth disorder [Unknown]
  - Injury [Unknown]
